FAERS Safety Report 4823231-5 (Version None)
Quarter: 2005Q4

REPORT INFORMATION
  Report Type: 
  Country: None (occurrence: None)
  Receive Date: 20051107
  Receipt Date: 20051031
  Transmission Date: 20060501
  Serious: Yes (Other)
  Sender: FDA-Public Use
  Company Number: 2005-10-0130

PATIENT
  Sex: Female

DRUGS (2)
  1. PEG-INTRON [Suspect]
     Dosage: SUBCUTANEOUS
     Route: 058
     Dates: start: 20050401, end: 20051001
  2. PEG-INTRON [Suspect]

REACTIONS (5)
  - DEVICE MALFUNCTION [None]
  - DRUG DOSE OMISSION [None]
  - MALAISE [None]
  - PHARMACEUTICAL PRODUCT COMPLAINT [None]
  - THYROID OPERATION [None]
